FAERS Safety Report 19856563 (Version 1)
Quarter: 2021Q3

REPORT INFORMATION
  Report Type: Report from Study
  Country: CH (occurrence: CH)
  Receive Date: 20210920
  Receipt Date: 20210920
  Transmission Date: 20211014
  Serious: Yes (Hospitalization)
  Sender: FDA-Public Use
  Company Number: NVSC2021CH213320

PATIENT
  Sex: Male

DRUGS (2)
  1. CGP 41251 / PKC 412A [Suspect]
     Active Substance: MIDOSTAURIN
     Indication: ACUTE MYELOID LEUKAEMIA
     Dosage: 100 MG
     Route: 048
     Dates: start: 2021
  2. HDM201 [Suspect]
     Active Substance: SIREMADLIN
     Indication: ACUTE MYELOID LEUKAEMIA
     Dosage: 40 MG
     Route: 048
     Dates: start: 2021

REACTIONS (1)
  - Febrile neutropenia [Not Recovered/Not Resolved]

NARRATIVE: CASE EVENT DATE: 20210913
